FAERS Safety Report 5267868-0 (Version None)
Quarter: 2007Q1

REPORT INFORMATION
  Report Type: 
  Country: None (occurrence: None)
  Receive Date: 20061213
  Receipt Date: 20041208
  Transmission Date: 20070707
  Serious: Yes (Other)
  Sender: FDA-Public Use
  Company Number: 2004UW25114

PATIENT
  Age: 65 Year
  Sex: Female

DRUGS (8)
  1. IRESSA [Suspect]
     Indication: NON-SMALL CELL LUNG CANCER
     Dates: start: 20040901
  2. NORTRIPTYLINE HCL [Concomitant]
  3. LIPITOR [Concomitant]
  4. TOPROL-XL [Concomitant]
  5. ASPIRIN [Concomitant]
  6. PHENERGAN HCL [Concomitant]
  7. ULTRAM [Concomitant]
  8. OXYCODONE HCL [Concomitant]

REACTIONS (4)
  - CHAPPED LIPS [None]
  - SKIN DISORDER [None]
  - STOMATITIS [None]
  - SWELLING FACE [None]
